FAERS Safety Report 7099552-5 (Version None)
Quarter: 2010Q4

REPORT INFORMATION
  Report Type: 
  Country: None (occurrence: None)
  Receive Date: 20101112
  Receipt Date: 20101029
  Transmission Date: 20110411
  Serious: Yes (Hospitalization, Disabling, Other)
  Sender: FDA-Public Use
  Company Number: FI-GENENTECH-309113

PATIENT
  Sex: Male
  Weight: 75.4 kg

DRUGS (6)
  1. MABTHERA [Suspect]
     Indication: CHRONIC LYMPHOCYTIC LEUKAEMIA
     Dosage: 100 MG, UNK
     Route: 042
     Dates: start: 20100627
  2. MABTHERA [Suspect]
     Dosage: 600 MG, UNK
     Route: 042
     Dates: start: 20100728
  3. MABTHERA [Suspect]
     Dosage: 100 MG, UNK
     Route: 042
     Dates: start: 20100906, end: 20100906
  4. BENDAMUSTINE [Concomitant]
     Indication: CHRONIC LYMPHOCYTIC LEUKAEMIA
     Dosage: 140 MG, UNK
     Route: 042
     Dates: start: 20100629, end: 20100907
  5. COTRIM [Concomitant]
     Indication: PRODUCT USED FOR UNKNOWN INDICATION
     Dosage: UNK
  6. OMEPRAZOLE [Concomitant]
     Indication: PRODUCT USED FOR UNKNOWN INDICATION
     Dosage: 40 MG, QAM

REACTIONS (3)
  - ECCHYMOSIS [None]
  - PROGRESSIVE MULTIFOCAL LEUKOENCEPHALOPATHY [None]
  - PSEUDOMONAS INFECTION [None]
